FAERS Safety Report 5104991-5 (Version None)
Quarter: 2006Q3

REPORT INFORMATION
  Report Type: 
  Country: None (occurrence: None)
  Receive Date: 20060911
  Receipt Date: 20060824
  Transmission Date: 20061208
  Serious: No
  Sender: FDA-Public Use
  Company Number: CHPA2006US07384

PATIENT
  Age: 63 Year
  Sex: Male
  Weight: 72.6 kg

DRUGS (2)
  1. TRANSDERM SCOP [Suspect]
     Indication: PROPHYLAXIS AGAINST MOTION SICKNESS
     Dosage: 1.5 MG, Q72H, TRANSDERMAL; SEE IMAGE
     Route: 062
     Dates: start: 20060617, end: 20060624
  2. TRANSDERM SCOP [Suspect]
     Indication: PROPHYLAXIS AGAINST MOTION SICKNESS
     Dosage: 1.5 MG, Q72H, TRANSDERMAL; SEE IMAGE
     Route: 062
     Dates: start: 20060726, end: 20060727

REACTIONS (2)
  - DRY MOUTH [None]
  - THROAT TIGHTNESS [None]
